FAERS Safety Report 16463589 (Version 1)
Quarter: 2019Q2

REPORT INFORMATION
  Report Type: Report from Study
  Country: CA (occurrence: CA)
  Receive Date: 20190621
  Receipt Date: 20190621
  Transmission Date: 20190711
  Serious: Yes (Hospitalization, Other)
  Sender: FDA-Public Use
  Company Number: CA-AMGEN-CANSL2019096724

PATIENT
  Sex: Female

DRUGS (1)
  1. PROLIA [Suspect]
     Active Substance: DENOSUMAB
     Indication: PRODUCT USED FOR UNKNOWN INDICATION
     Dosage: UNK
     Route: 065

REACTIONS (6)
  - Diverticulitis [Unknown]
  - Anaemia [Unknown]
  - Splenectomy [Unknown]
  - Colectomy [Unknown]
  - Diverticulum intestinal haemorrhagic [Unknown]
  - Walking disability [Not Recovered/Not Resolved]

NARRATIVE: CASE EVENT DATE: 200606
